FAERS Safety Report 20902250 (Version 1)
Quarter: 2022Q2

REPORT INFORMATION
  Report Type: Spontaneous
  Country: US (occurrence: US)
  Receive Date: 20220601
  Receipt Date: 20220601
  Transmission Date: 20220720
  Serious: Yes (Other)
  Sender: FDA-Public Use
  Company Number: US-BRISTOL-MYERS SQUIBB COMPANY-2022-038555

PATIENT
  Age: 85 Year
  Sex: Female

DRUGS (1)
  1. REVLIMID [Suspect]
     Active Substance: LENALIDOMIDE
     Indication: Product used for unknown indication
     Dosage: EVERY DAY ON DAYS 1-21, REPEAT EVERY 28 DAYS
     Route: 048

REACTIONS (5)
  - Hip fracture [Unknown]
  - Diabetes mellitus inadequate control [Unknown]
  - Herpes zoster [Unknown]
  - Cardiac disorder [Unknown]
  - Pain [Unknown]
